FAERS Safety Report 8291158 (Version 7)
Quarter: 2013Q3

REPORT INFORMATION
  Report Type: Report from Study
  Country: HK (occurrence: HK)
  Receive Date: 20111214
  Receipt Date: 20130904
  Transmission Date: 20140515
  Serious: Yes (Hospitalization)
  Sender: FDA-Public Use
  Company Number: HK-ROCHE-781088

PATIENT
  Age: 48 Year
  Sex: Female
  Weight: 66.5 kg

DRUGS (16)
  1. BEVACIZUMAB [Suspect]
     Indication: OVARIAN CANCER
     Dosage: DATE OF LAST DOSE PRIOR TO SAE-24/MAY/2011
     Route: 042
     Dates: start: 20110524, end: 20110613
  2. BEVACIZUMAB [Suspect]
     Route: 042
     Dates: start: 20110621, end: 20111201
  3. PACLITAXEL [Suspect]
     Indication: OVARIAN CANCER
     Dosage: FORM: INFUSION, LAST DATE PRIOR TO SAE:24/MAY/2011
     Route: 042
     Dates: start: 20110524, end: 20110613
  4. PACLITAXEL [Suspect]
     Route: 042
     Dates: start: 20110621, end: 20111201
  5. CARBOPLATIN [Suspect]
     Indication: OVARIAN CANCER
     Dosage: LAST DATE PRIOR TO SAE:24/MAY/2011, DOSE 6 AUC
     Route: 042
     Dates: start: 20110524, end: 20110613
  6. CARBOPLATIN [Suspect]
     Route: 042
     Dates: start: 20110621, end: 20111201
  7. GASTROCAINE [Concomitant]
  8. CIMETIDINE [Concomitant]
  9. DICLOFENAC [Concomitant]
  10. MEFENAMIC ACID [Concomitant]
  11. MAXOLON [Concomitant]
     Route: 065
     Dates: start: 20110715, end: 20110715
  12. CHLOORHEXIDINEDIGLUCONAAT [Concomitant]
     Dosage: DOSE: 2 APP
     Route: 065
  13. LEVOFLOXACIN [Concomitant]
     Route: 065
     Dates: start: 20110715, end: 20110723
  14. PEPCIDINE [Concomitant]
     Route: 065
     Dates: start: 20110715, end: 20110716
  15. PHENSEDYL [Concomitant]
     Route: 065
     Dates: start: 20110703, end: 20110706
  16. LAMIVUDINE [Concomitant]
     Route: 065
     Dates: start: 20110523

REACTIONS (6)
  - Pulmonary tuberculosis [Recovered/Resolved]
  - Infection [Recovered/Resolved]
  - Pyrexia [Recovered/Resolved]
  - Syncope [Recovered/Resolved]
  - Presyncope [Recovered/Resolved]
  - Urinary tract infection [Recovered/Resolved]
